FAERS Safety Report 12237768 (Version 5)
Quarter: 2016Q4

REPORT INFORMATION
  Report Type: Report from Study
  Country: BR (occurrence: BR)
  Receive Date: 20160405
  Receipt Date: 20161024
  Transmission Date: 20170207
  Serious: Yes (Other)
  Sender: FDA-Public Use
  Company Number: PHHY2016BR038303

PATIENT
  Age: 80 Year
  Sex: Male
  Weight: 67 kg

DRUGS (1)
  1. EXJADE [Suspect]
     Active Substance: DEFERASIROX
     Indication: MYELODYSPLASTIC SYNDROME
     Dosage: 25 MG/KG, QD (1500 MG/3 TABLETS OF 500 MG/ DAILY)
     Route: 048
     Dates: start: 20120723, end: 20160316

REACTIONS (9)
  - Blood creatinine increased [Recovered/Resolved]
  - Apathy [Unknown]
  - Pyrexia [Unknown]
  - Osteoarthritis [Unknown]
  - Influenza [Recovering/Resolving]
  - Thrombocytopenia [Recovering/Resolving]
  - Blast cell count increased [Unknown]
  - Serum ferritin increased [Unknown]
  - Malaise [Recovering/Resolving]

NARRATIVE: CASE EVENT DATE: 20160316
